FAERS Safety Report 7480395-5 (Version None)
Quarter: 2011Q2

REPORT INFORMATION
  Report Type: 
  Country: None (occurrence: None)
  Receive Date: 20110516
  Receipt Date: 20110503
  Transmission Date: 20111010
  Serious: Yes (Hospitalization)
  Sender: FDA-Public Use
  Company Number: PHHY2011US32312

PATIENT
  Sex: Female

DRUGS (10)
  1. RECLAST [Suspect]
     Dosage: UNK
     Dates: start: 20110201
  2. TEMAZ [Concomitant]
     Indication: SOMNOLENCE
     Dosage: 30 MG, QD
     Route: 048
  3. LEVOXYL [Concomitant]
     Indication: THYROID DISORDER
     Dosage: 100 UG, QD
     Route: 048
  4. RECLAST [Suspect]
     Indication: OSTEOPOROSIS
     Dosage: 5 MG, UNK
     Route: 042
     Dates: start: 20101111
  5. EVISTA [Concomitant]
  6. PREVACID [Concomitant]
     Dosage: 30 MG, QD
     Route: 048
  7. VYTORIN [Concomitant]
     Indication: BLOOD CHOLESTEROL
     Dosage: 10/80 MG QD
     Route: 048
  8. LANSOPRAZOLE [Concomitant]
  9. CITALOPRAM HYDROBROMIDE [Concomitant]
     Indication: DEPRESSION
     Dosage: 40 MG, QD
     Route: 048
  10. ACETAMINOPHEN [Concomitant]

REACTIONS (3)
  - GROIN PAIN [None]
  - PAIN IN EXTREMITY [None]
  - ARTHRALGIA [None]
